FAERS Safety Report 4725558-4 (Version None)
Quarter: 2005Q3

REPORT INFORMATION
  Report Type: 
  Country: None (occurrence: None)
  Receive Date: 20050722
  Receipt Date: 20050722
  Transmission Date: 20060218
  Serious: Yes (Death)
  Sender: FDA-Public Use
  Company Number: None

PATIENT
  Age: 52 Year
  Sex: Female
  Weight: 44.5 kg

DRUGS (1)
  1. ETANERCEPT [Suspect]
     Indication: PROPHYLAXIS AGAINST TRANSPLANT REJECTION
     Dosage: 25 MG SQ 2X WEEK
     Route: 058
     Dates: start: 20050402, end: 20050602

REACTIONS (10)
  - CYTOMEGALOVIRUS INFECTION [None]
  - DIARRHOEA [None]
  - ESCHERICHIA SEPSIS [None]
  - FANCONI SYNDROME [None]
  - GRAFT VERSUS HOST DISEASE [None]
  - HYPOTENSION [None]
  - HYPOXIA [None]
  - PNEUMONIA [None]
  - SEPTIC SHOCK [None]
  - SOMNOLENCE [None]
